FAERS Safety Report 25881970 (Version 2)
Quarter: 2025Q4

REPORT INFORMATION
  Report Type: Report from Study
  Country: EU (occurrence: EU)
  Receive Date: 20251005
  Receipt Date: 20251021
  Transmission Date: 20260117
  Serious: Yes (Other)
  Sender: ABBVIE
  Company Number: EU-ABBVIE-6483060

PATIENT
  Age: 59 Year
  Sex: Male
  Weight: 82 kg

DRUGS (14)
  1. FOSCARBIDOPA\FOSLEVODOPA [Suspect]
     Active Substance: FOSCARBIDOPA\FOSLEVODOPA
     Indication: Parkinson^s disease
     Dosage: DURATION OF THE DAILY INFUSION: 24 HOURS?FLOW RATE: 0.4 ML/H?DAILY DOSE OF FOSLEVODOPA/FOSCARBIDO...
     Route: 058
     Dates: start: 20250311
  2. FOSCARBIDOPA\FOSLEVODOPA [Suspect]
     Active Substance: FOSCARBIDOPA\FOSLEVODOPA
     Dosage: DURATION OF THE DAILY INFUSION: 24 HOURS?FLOW RATE : 0.51 ML/H?DAILY DOSE OF FOSLEVODOPA/FOSCARBI...
     Route: 058
     Dates: start: 20250312, end: 20250326
  3. FOSCARBIDOPA\FOSLEVODOPA [Suspect]
     Active Substance: FOSCARBIDOPA\FOSLEVODOPA
     Dosage: DURATION OF THE DAILY INFUSION: 24 HOURS?FLOW RATE : 0.56 ML/H?DAILY DOSE OF FOSLEVODOPA/FOSCARBI...
     Route: 058
     Dates: start: 20250326
  4. FOSCARBIDOPA\FOSLEVODOPA [Suspect]
     Active Substance: FOSCARBIDOPA\FOSLEVODOPA
     Dosage: DURATION OF THE DAILY INFUSION: 24 HOURS?BASIC FLOW: 0.66 ML/H IN MORNING, AFTERNOON AND NIGHT?LO...
     Route: 058
     Dates: start: 20250430
  5. FOSCARBIDOPA\FOSLEVODOPA [Suspect]
     Active Substance: FOSCARBIDOPA\FOSLEVODOPA
     Dosage: BASIC FLOW 0.71 ML/H IN MORNING, AFTERNOON AND NIGHT?LOW ALTERNATING FLOW 0.66 ML/H IN MORNING, A...
     Route: 058
     Dates: start: 20250515, end: 20250527
  6. FOSCARBIDOPA\FOSLEVODOPA [Suspect]
     Active Substance: FOSCARBIDOPA\FOSLEVODOPA
     Dosage: DURATION OF THE DAILY INFUSION: 24 HOURS?BASIC FLOW 0.71 ML/H: IN MORNING, AFTERNOON AND NIGHT?LO...
     Route: 058
     Dates: start: 20250527
  7. FOSCARBIDOPA\FOSLEVODOPA [Suspect]
     Active Substance: FOSCARBIDOPA\FOSLEVODOPA
     Dosage: LAST ADMIN DATE: 2025.
     Route: 058
     Dates: start: 20250708
  8. APOMORPHINE [Concomitant]
     Active Substance: APOMORPHINE
     Indication: Parkinson^s disease
     Dosage: CONTINUOUS TREATMENT
     Dates: end: 20250311
  9. BENSERAZIDE\LEVODOPA [Concomitant]
     Active Substance: BENSERAZIDE\LEVODOPA
     Indication: Parkinson^s disease
     Dosage: CONTINUOUS TREATMENT
     Dates: start: 20250324, end: 20250324
  10. ASPIRIN [Concomitant]
     Active Substance: ASPIRIN
     Indication: Product used for unknown indication
  11. VITAMIN D [Concomitant]
     Active Substance: VITAMIN D NOS
     Indication: Product used for unknown indication
     Dates: start: 20250313
  12. MELATONIN [Concomitant]
     Active Substance: MELATONIN
     Indication: Product used for unknown indication
     Dates: start: 20250415
  13. FOLIC ACID [Concomitant]
     Active Substance: FOLIC ACID
     Indication: Product used for unknown indication
     Dates: start: 20250313
  14. VITAMIN B12 [Concomitant]
     Active Substance: CYANOCOBALAMIN
     Indication: Product used for unknown indication
     Dates: start: 20250313, end: 20250320

REACTIONS (2)
  - Abdominal pain [Recovered/Resolved]
  - Weight decreased [Recovered/Resolved]

NARRATIVE: CASE EVENT DATE: 20250529
